FAERS Safety Report 19743852 (Version 3)
Quarter: 2021Q3

REPORT INFORMATION
  Report Type: Spontaneous
  Country: US (occurrence: US)
  Receive Date: 20210825
  Receipt Date: 20210920
  Transmission Date: 20211014
  Serious: Yes (Hospitalization, Other)
  Sender: FDA-Public Use
  Company Number: US-GLAXOSMITHKLINE-US2021AMR175863

PATIENT
  Sex: Female

DRUGS (2)
  1. BENLYSTA [Suspect]
     Active Substance: BELIMUMAB
     Indication: SYSTEMIC LUPUS ERYTHEMATOSUS
     Dosage: 200 MG/ML, WE
     Route: 058
     Dates: start: 2021
  2. BENLYSTA [Suspect]
     Active Substance: BELIMUMAB
     Indication: ANKYLOSING SPONDYLITIS

REACTIONS (4)
  - Product dose omission issue [Unknown]
  - Kidney infection [Unknown]
  - Confusional state [Unknown]
  - Product use in unapproved indication [Unknown]
